FAERS Safety Report 21663856 (Version 4)
Quarter: 2022Q4

REPORT INFORMATION
  Report Type: Spontaneous
  Country: AU (occurrence: AU)
  Receive Date: 20221130
  Receipt Date: 20221227
  Transmission Date: 20230113
  Serious: Yes (Hospitalization, Other)
  Sender: FDA-Public Use
  Company Number: AU-BAXTER-2022BAX025286

PATIENT
  Age: 80 Year
  Sex: Male

DRUGS (14)
  1. SODIUM CHLORIDE [Suspect]
     Active Substance: SODIUM CHLORIDE
     Indication: Medication dilution
     Dosage: 240 ML AT AN UNSPECIFIED DOSE AND FREQUENCY
     Route: 065
  2. SODIUM CHLORIDE [Suspect]
     Active Substance: SODIUM CHLORIDE
     Dosage: 240 ML AT AN UNSPECIFIED DOSE AND FREQUENCY
     Route: 042
     Dates: start: 202211, end: 202211
  3. SODIUM CHLORIDE [Suspect]
     Active Substance: SODIUM CHLORIDE
     Dosage: 240 ML AT AN UNSPECIFIED DOSE AND FREQUENCY
     Route: 042
     Dates: start: 202211, end: 202211
  4. SODIUM CHLORIDE [Suspect]
     Active Substance: SODIUM CHLORIDE
     Dosage: 240 ML AT AN UNSPECIFIED DOSE AND FREQUENCYL
     Route: 042
     Dates: start: 202211, end: 202211
  5. CITRATE [Suspect]
     Active Substance: CITRIC ACID MONOHYDRATE
     Dosage: BUFFER
     Route: 065
  6. CITRATE [Suspect]
     Active Substance: CITRIC ACID MONOHYDRATE
     Dosage: BUFFER
     Route: 042
     Dates: start: 202211, end: 202211
  7. CITRATE [Suspect]
     Active Substance: CITRIC ACID MONOHYDRATE
     Dosage: BUFFER
     Route: 042
     Dates: start: 202211, end: 202211
  8. CITRATE [Suspect]
     Active Substance: CITRIC ACID MONOHYDRATE
     Dosage: BUFFER
     Route: 042
     Dates: start: 202211, end: 202211
  9. PENICILLIN G [Suspect]
     Active Substance: PENICILLIN G
     Indication: Streptococcal endocarditis
     Dosage: (CSL) 10.8 G AT AN UNSPECIFIED DOSE AND FREQUENCY
     Route: 065
  10. PENICILLIN G [Suspect]
     Active Substance: PENICILLIN G
     Dosage: (CSL) 10.8 G AT AN UNSPECIFIED DOSE AND FREQUENCY
     Route: 042
     Dates: start: 202211, end: 202211
  11. PENICILLIN G [Suspect]
     Active Substance: PENICILLIN G
     Dosage: (CSL) 10.8 G AT AN UNSPECIFIED DOSE AND FREQUENCY
     Route: 042
     Dates: start: 202211, end: 202211
  12. PENICILLIN G [Suspect]
     Active Substance: PENICILLIN G
     Dosage: (CSL) 10.8 G AT AN UNSPECIFIED DOSE AND FREQUENCY
     Route: 042
     Dates: start: 202211, end: 202211
  13. PENICILLIN G [Suspect]
     Active Substance: PENICILLIN G
     Dosage: UNK
     Route: 065
     Dates: start: 20221118
  14. PENICILLIN G [Suspect]
     Active Substance: PENICILLIN G
     Indication: Streptococcal endocarditis
     Dosage: INTERMITTENT
     Route: 065
     Dates: start: 20221106

REACTIONS (4)
  - Acute kidney injury [Recovered/Resolved]
  - Blood creatinine increased [Recovered/Resolved]
  - Disease progression [Recovered/Resolved]
  - Pyrexia [Unknown]

NARRATIVE: CASE EVENT DATE: 20221101
